FAERS Safety Report 7040519-0 (Version None)
Quarter: 2010Q4

REPORT INFORMATION
  Report Type: 
  Country: None (occurrence: None)
  Receive Date: 20101008
  Receipt Date: 20101008
  Transmission Date: 20110411
  Serious: Yes (Disabling)
  Sender: FDA-Public Use
  Company Number: None

PATIENT
  Sex: Female
  Weight: 109.1 kg

DRUGS (1)
  1. ZICAM COLD REMEDY NASAL GEL + GEL SWAB 1 SWAB ZICAM LLC [Suspect]
     Indication: NASOPHARYNGITIS
     Dosage: 1 SWAY 1 TIME A DAY I USED 3 SWABS TOTAL, ONE EACH DAY.
     Route: 045
     Dates: start: 20090517, end: 20090519

REACTIONS (3)
  - AGEUSIA [None]
  - ANOSMIA [None]
  - DYSGEUSIA [None]
